FAERS Safety Report 17145489 (Version 2)
Quarter: 2020Q1

REPORT INFORMATION
  Report Type: Spontaneous
  Country: US (occurrence: US)
  Receive Date: 20191212
  Receipt Date: 20200113
  Transmission Date: 20200409
  Serious: No
  Sender: FDA-Public Use
  Company Number: US-GW PHARMA-201911USGW4498

PATIENT

DRUGS (1)
  1. EPIDIOLEX [Suspect]
     Active Substance: CANNABIDIOL
     Indication: LENNOX-GASTAUT SYNDROME
     Dosage: 250 MILLIGRAM, QD (100MG EVERY MORNING AND 150MG EVERY EVENING)
     Route: 048
     Dates: start: 20181214

REACTIONS (1)
  - Gastrostomy [Unknown]
